FAERS Safety Report 4551042-7 (Version None)
Quarter: 2005Q1

REPORT INFORMATION
  Report Type: 
  Country: None (occurrence: None)
  Receive Date: 20050113
  Receipt Date: 20040716
  Transmission Date: 20050727
  Serious: No
  Sender: FDA-Public Use
  Company Number: US-BRISTOL-MYERS SQUIBB COMPANY-12644910

PATIENT
  Age: 51 Year
  Sex: Male
  Weight: 77 kg

DRUGS (7)
  1. PERCOCET [Suspect]
     Indication: BACK PAIN
     Dosage: CURRENT DOSE 5 TABS EVERY 3 HOURS.
     Route: 048
     Dates: start: 19950101
  2. TRAZODONE HCL [Suspect]
     Indication: BACK PAIN
     Route: 048
     Dates: start: 19950101
  3. SOMA [Suspect]
     Indication: BACK PAIN
     Route: 048
     Dates: start: 19940101
  4. ZOLOFT [Suspect]
     Indication: BACK PAIN
     Route: 048
  5. PROTONIX [Concomitant]
     Route: 048
     Dates: start: 20040709
  6. PHENERGAN [Concomitant]
     Route: 048
     Dates: start: 20040709
  7. GABITRIL [Concomitant]
     Route: 048
     Dates: start: 20040501

REACTIONS (5)
  - ANOREXIA [None]
  - DIARRHOEA [None]
  - NAUSEA [None]
  - PYREXIA [None]
  - WEIGHT DECREASED [None]
